FAERS Safety Report 8369980-6 (Version None)
Quarter: 2012Q2

REPORT INFORMATION
  Report Type: 
  Country: None (occurrence: None)
  Receive Date: 20120518
  Receipt Date: 20120514
  Transmission Date: 20120825
  Serious: Yes (Life-Threatening, Hospitalization, Disabling)
  Sender: FDA-Public Use
  Company Number: AU-B.I. PHARMACEUTICALS,INC./RIDGEFIELD-2012-AU-00851AU

PATIENT
  Sex: Female
  Weight: 75 kg

DRUGS (10)
  1. DIATHIAZIDE [Concomitant]
     Dosage: 25 MG
  2. DOXEPIN [Concomitant]
     Dosage: 75 MG
  3. PROPYLENE GLYCOL [Concomitant]
     Dosage: 0.4% 2 DROPS QID BE
  4. ATENOLOL [Concomitant]
     Dosage: 200 MG
  5. EZETIMIBE [Concomitant]
     Dosage: 10 MG
  6. AMLODIPINE BESYLATE [Concomitant]
     Dosage: 5 MG
  7. MISCOTEARS [Concomitant]
     Dosage: 1 DROP TDS BE
  8. PRADAXA [Suspect]
     Indication: CEREBROVASCULAR ACCIDENT PROPHYLAXIS
     Dates: start: 20111101, end: 20111201
  9. PERINDOPRIL ERBUMINE [Concomitant]
     Dosage: 10 MG
  10. CRESTOR [Concomitant]
     Dosage: 40 MG

REACTIONS (5)
  - HALLUCINATION [None]
  - RADIUS FRACTURE [None]
  - ULNA FRACTURE [None]
  - DELUSION [None]
  - SOMNAMBULISM [None]
